FAERS Safety Report 11018090 (Version 2)
Quarter: 2015Q2

REPORT INFORMATION
  Report Type: Spontaneous
  Country: US (occurrence: US)
  Receive Date: 20150412
  Receipt Date: 20150524
  Transmission Date: 20150821
  Serious: No
  Sender: FDA-Public Use
  Company Number: US-JNJFOC-20130806848

PATIENT
  Age: 50 Year
  Sex: Male

DRUGS (18)
  1. THALIDOMIDE [Suspect]
     Active Substance: THALIDOMIDE
     Indication: WALDENSTROM^S MACROGLOBULINAEMIA
     Dosage: ON DAY 1 TO 4
     Route: 048
  2. CYCLOPHOSPHAMIDE. [Suspect]
     Active Substance: CYCLOPHOSPHAMIDE
     Indication: WALDENSTROM^S MACROGLOBULINAEMIA
     Dosage: ON DAY 1 TO 4
     Route: 048
  3. BORTEZOMIB [Suspect]
     Active Substance: BORTEZOMIB
     Indication: WALDENSTROM^S MACROGLOBULINAEMIA
     Dosage: DAY 4
     Route: 042
  4. THALIDOMIDE [Suspect]
     Active Substance: THALIDOMIDE
     Indication: WALDENSTROM^S MACROGLOBULINAEMIA
     Route: 048
  5. ETOPOSIDE. [Suspect]
     Active Substance: ETOPOSIDE
     Indication: WALDENSTROM^S MACROGLOBULINAEMIA
     Dosage: ON DAY 1 TO 4
     Route: 048
  6. CYTARABINE. [Suspect]
     Active Substance: CYTARABINE
     Indication: WALDENSTROM^S MACROGLOBULINAEMIA
     Route: 037
  7. ETOPOSIDE. [Suspect]
     Active Substance: ETOPOSIDE
     Indication: WALDENSTROM^S MACROGLOBULINAEMIA
     Dosage: ON DAY 1 TO 4
     Route: 048
  8. CARMUSTINE [Suspect]
     Active Substance: CARMUSTINE
     Indication: WALDENSTROM^S MACROGLOBULINAEMIA
     Dosage: DAY 1
     Route: 042
  9. GRANULOCYTE COLONY-STIMULATING FACTOR [Concomitant]
     Active Substance: GRANULOCYTE COLONY-STIMULATING FACTOR NOS
     Route: 065
  10. DEXAMETHASONE. [Suspect]
     Active Substance: DEXAMETHASONE
     Indication: WALDENSTROM^S MACROGLOBULINAEMIA
     Dosage: ON DAY 1 TO 4
     Route: 042
  11. CYTARABINE. [Suspect]
     Active Substance: CYTARABINE
     Indication: WALDENSTROM^S MACROGLOBULINAEMIA
     Dosage: ON DAYS 1 TO 4
     Route: 037
  12. RITUXIMAB [Suspect]
     Active Substance: RITUXIMAB
     Indication: WALDENSTROM^S MACROGLOBULINAEMIA
     Route: 065
  13. CISPLATIN. [Suspect]
     Active Substance: CISPLATIN
     Indication: WALDENSTROM^S MACROGLOBULINAEMIA
     Dosage: ON DAY 1 TO 4
     Route: 048
  14. MELPHALAN [Suspect]
     Active Substance: MELPHALAN
     Indication: WALDENSTROM^S MACROGLOBULINAEMIA
     Dosage: DAY 5
     Route: 042
  15. DOXORUBICIN [Suspect]
     Active Substance: DOXORUBICIN
     Indication: WALDENSTROM^S MACROGLOBULINAEMIA
     Dosage: DAY 1 TO 4
     Route: 042
  16. METHOTREXATE [Suspect]
     Active Substance: METHOTREXATE
     Indication: WALDENSTROM^S MACROGLOBULINAEMIA
     Route: 037
  17. HYDROCORTISONE. [Suspect]
     Active Substance: HYDROCORTISONE
     Indication: WALDENSTROM^S MACROGLOBULINAEMIA
     Route: 037
  18. DEXAMETHASONE. [Suspect]
     Active Substance: DEXAMETHASONE
     Indication: WALDENSTROM^S MACROGLOBULINAEMIA
     Dosage: ON DAY 1 TO 4
     Route: 042

REACTIONS (1)
  - Drug ineffective for unapproved indication [Unknown]
